FAERS Safety Report 5085231-2 (Version None)
Quarter: 2006Q3

REPORT INFORMATION
  Report Type: 
  Country: None (occurrence: None)
  Receive Date: 20060731
  Receipt Date: 20051005
  Transmission Date: 20061208
  Serious: Yes (Hospitalization)
  Sender: FDA-Public Use
  Company Number: 200511499BWH

PATIENT
  Age: 79 Year
  Sex: Male

DRUGS (8)
  1. AVELOX [Suspect]
     Indication: BRONCHITIS
     Dosage: 400 MG, ONCE, ORAL
     Route: 048
     Dates: start: 20050707
  2. AMIODARONE [Suspect]
     Indication: ATRIAL FIBRILLATION
     Dosage: 100 MG, QD, ORAL
     Route: 048
     Dates: start: 20050301, end: 20050701
  3. ALLOPURINOL [Concomitant]
  4. PRAVACHOL [Concomitant]
  5. LISINOPRIL [Concomitant]
  6. MECLIZINE [Concomitant]
  7. VITAMINS NOS [Concomitant]
  8. GABAPENTIN [Concomitant]

REACTIONS (3)
  - ASTHENIA [None]
  - SYNCOPE [None]
  - TREMOR [None]
